FAERS Safety Report 5446669-4 (Version None)
Quarter: 2007Q3

REPORT INFORMATION
  Report Type: 
  Country: None (occurrence: None)
  Receive Date: 20070907
  Receipt Date: 20070617
  Transmission Date: 20080115
  Serious: Yes (Other)
  Sender: FDA-Public Use
  Company Number: DK-SHR-DK-2007-032398

PATIENT
  Age: 16 Year
  Sex: Female
  Weight: 80 kg

DRUGS (2)
  1. NOVYNETTE [Suspect]
     Indication: ORAL CONTRACEPTION
     Dosage: 1 TAB(S), 21D/28D
     Route: 048
     Dates: start: 20040331, end: 20060616
  2. YASMIN [Suspect]
     Indication: ORAL CONTRACEPTION
     Dosage: 1 TAB(S), 21D/28D
     Route: 048
     Dates: start: 20060712, end: 20061212

REACTIONS (3)
  - DEPRESSION [None]
  - VISUAL ACUITY REDUCED [None]
  - WEIGHT INCREASED [None]
